FAERS Safety Report 17173526 (Version 1)
Quarter: 2019Q4

REPORT INFORMATION
  Report Type: Spontaneous
  Country: GB (occurrence: GB)
  Receive Date: 20191219
  Receipt Date: 20191219
  Transmission Date: 20200122
  Serious: Yes (Hospitalization)
  Sender: FDA-Public Use
  Company Number: GB-VERTEX PHARMACEUTICALS-2019-013093

PATIENT
  Age: 36 Year
  Sex: Male

DRUGS (1)
  1. KALYDECO [Suspect]
     Active Substance: IVACAFTOR
     Indication: CYSTIC FIBROSIS
     Dosage: 150 MG, BID
     Route: 048
     Dates: start: 2013

REACTIONS (3)
  - Hepatic cirrhosis [Unknown]
  - Kidney infection [Unknown]
  - Rhinoplasty [Unknown]

NARRATIVE: CASE EVENT DATE: 2019
